FAERS Safety Report 6654608-3 (Version None)
Quarter: 2010Q1

REPORT INFORMATION
  Report Type: 
  Country: None (occurrence: None)
  Receive Date: 20100326
  Receipt Date: 20100315
  Transmission Date: 20100710
  Serious: Yes (Hospitalization)
  Sender: FDA-Public Use
  Company Number: FR-ELI_LILLY_AND_COMPANY-FR201003004140

PATIENT
  Age: 70 Year
  Sex: Female

DRUGS (1)
  1. CYMBALTA [Suspect]
     Indication: MYALGIA
     Dosage: 60 MG, DAILY (1/D)
     Route: 048
     Dates: start: 20090101, end: 20100101

REACTIONS (12)
  - ALANINE AMINOTRANSFERASE INCREASED [None]
  - ASPARTATE AMINOTRANSFERASE INCREASED [None]
  - BLOOD ALBUMIN DECREASED [None]
  - BLOOD ALKALINE PHOSPHATASE INCREASED [None]
  - BLOOD BILIRUBIN INCREASED [None]
  - CHOLESTATIC LIVER INJURY [None]
  - CONDITION AGGRAVATED [None]
  - DECREASED APPETITE [None]
  - GAMMA-GLUTAMYLTRANSFERASE INCREASED [None]
  - GENERAL PHYSICAL HEALTH DETERIORATION [None]
  - MALNUTRITION [None]
  - URINARY TRACT INFECTION [None]
